FAERS Safety Report 5276174-X (Version None)
Quarter: 2007Q1

REPORT INFORMATION
  Report Type: 
  Country: None (occurrence: None)
  Receive Date: 20070326
  Receipt Date: 20070312
  Transmission Date: 20070707
  Serious: Yes (Other)
  Sender: FDA-Public Use
  Company Number: US-SANOFI-SYNTHELABO-A03200702198

PATIENT
  Sex: Female

DRUGS (11)
  1. IBUPROFEN [Concomitant]
     Dosage: UNK
     Route: 065
  2. REGLAN [Concomitant]
     Dosage: UNK
     Route: 065
  3. ZANTAC [Concomitant]
     Dosage: UNK
     Route: 065
  4. HYDROCODONE [Concomitant]
     Dosage: UNK
     Route: 065
  5. ANTIBIOTICS [Concomitant]
     Dosage: UNK
     Route: 065
  6. ALLEGRA [Concomitant]
     Dosage: UNK
     Route: 065
  7. ZIAC [Concomitant]
     Dosage: UNK
     Route: 065
  8. ORAL CONTRACEPTIVE [Concomitant]
     Dosage: UNK
     Route: 065
  9. SEROQUEL [Concomitant]
     Dosage: UNK
     Route: 065
  10. ZOLOFT [Concomitant]
     Dosage: UNK
     Route: 065
  11. AMBIEN [Suspect]
     Indication: INSOMNIA
     Route: 048
     Dates: start: 20000101, end: 20050928

REACTIONS (7)
  - AMNESIA [None]
  - BINGE EATING [None]
  - DRUG ABUSER [None]
  - DRUG DEPENDENCE [None]
  - ROAD TRAFFIC ACCIDENT [None]
  - SLEEP WALKING [None]
  - WEIGHT INCREASED [None]
